FAERS Safety Report 6069624-2 (Version None)
Quarter: 2009Q1

REPORT INFORMATION
  Report Type: 
  Country: None (occurrence: None)
  Receive Date: 20090209
  Receipt Date: 20090130
  Transmission Date: 20090719
  Serious: Yes (Hospitalization)
  Sender: FDA-Public Use
  Company Number: JP-BRISTOL-MYERS SQUIBB COMPANY-14483499

PATIENT
  Age: 69 Year
  Sex: Male
  Weight: 72 kg

DRUGS (13)
  1. ERBITUX [Suspect]
     Indication: COLORECTAL CANCER RECURRENT
     Dosage: (692MG)15OCT08;(432MG)22OCT08;05NOV08;12NOV08;03DEC08;
     Route: 042
     Dates: start: 20081015, end: 20081203
  2. POLARAMINE [Concomitant]
     Indication: PREMEDICATION
     Dosage: EVERY TIME BEFORE ERBITUX
     Route: 042
  3. DECADRON [Concomitant]
     Indication: PREMEDICATION
     Dosage: (8MG) EVERY TIME BEFORE ERBITUX;(16MG) BEFOR THE FIRST INFUSION OF ERBITUX
     Route: 042
  4. DEPAS [Concomitant]
     Indication: INSOMNIA
     Route: 048
     Dates: start: 20081015, end: 20090112
  5. CRAVIT [Concomitant]
     Indication: NASOPHARYNGITIS
     Route: 048
     Dates: start: 20081120, end: 20081126
  6. MEDICON [Concomitant]
     Indication: NASOPHARYNGITIS
     Route: 048
     Dates: start: 20081120, end: 20081126
  7. LASIX [Concomitant]
     Route: 048
     Dates: start: 20081212, end: 20081216
  8. OXYCONTIN [Concomitant]
     Indication: PAIN
     Route: 048
     Dates: start: 20090107
  9. NOVAMIN [Concomitant]
     Indication: PROPHYLAXIS OF NAUSEA AND VOMITING
     Route: 048
     Dates: start: 20090107
  10. MAGLAX [Concomitant]
     Indication: CONSTIPATION PROPHYLAXIS
     Route: 048
     Dates: start: 20090107
  11. HEPARIN [Concomitant]
     Indication: THROMBOSIS
     Dosage: 15000IU,13JAN09;20000IU,14-19JAN09,5D;25000IU,20-30JAN09,10D.
     Route: 042
     Dates: start: 20090113, end: 20090130
  12. WARFARIN [Concomitant]
     Indication: THROMBOSIS
     Route: 048
     Dates: start: 20080127
  13. MYSLEE [Concomitant]
     Indication: INSOMNIA
     Route: 048
     Dates: start: 20090113

REACTIONS (2)
  - LUNG DISORDER [None]
  - THROMBOSIS [None]
